FAERS Safety Report 5744623-6 (Version None)
Quarter: 2008Q2

REPORT INFORMATION
  Report Type: 
  Country: None (occurrence: None)
  Receive Date: 20080520
  Receipt Date: 20080403
  Transmission Date: 20081010
  Serious: No
  Sender: FDA-Public Use
  Company Number: US-ABBOTT-08P-163-0445233-00

PATIENT
  Sex: Female
  Weight: 136.2 kg

DRUGS (5)
  1. AZMACORT [Suspect]
     Indication: ASTHMA
     Dosage: 2-4 PUFFS
     Route: 055
     Dates: start: 20080228, end: 20080304
  2. COMBIVENT [Concomitant]
     Indication: ASTHMA
     Route: 055
  3. FISH OIL [Concomitant]
     Indication: MINERAL SUPPLEMENTATION
     Route: 048
  4. IBUPROFEN [Concomitant]
     Indication: MIGRAINE
  5. SALBUTAMOL SULFATE [Concomitant]
     Indication: ASTHMA
     Route: 055

REACTIONS (2)
  - GINGIVAL BLEEDING [None]
  - GINGIVAL RECESSION [None]
